FAERS Safety Report 14580769 (Version 1)
Quarter: 2018Q1

REPORT INFORMATION
  Report Type: Spontaneous
  Country: GB (occurrence: FR)
  Receive Date: 20180228
  Receipt Date: 20180228
  Transmission Date: 20180509
  Serious: Yes (Other)
  Sender: FDA-Public Use
  Company Number: FR-FRESENIUS KABI-FK201802265

PATIENT
  Age: 71 Year
  Sex: Female
  Weight: 113 kg

DRUGS (11)
  1. SUFENTANIL MERCK [Suspect]
     Active Substance: SUFENTANIL
     Indication: ANAESTHESIA
     Route: 042
     Dates: start: 20180202, end: 20180202
  2. TRACRIUM [Concomitant]
     Active Substance: ATRACURIUM BESYLATE
     Indication: NEUROMUSCULAR BLOCKING THERAPY
     Route: 042
     Dates: start: 20180202, end: 20180202
  3. CEFAZOLINE MYLAN [Concomitant]
     Active Substance: CEFAZOLIN SODIUM
     Indication: ANTIBIOTIC PROPHYLAXIS
     Route: 042
     Dates: start: 20180202, end: 20180202
  4. KETAMINE RENAUDIN [Suspect]
     Active Substance: KETAMINE
     Indication: ANAESTHESIA
     Route: 040
     Dates: start: 20180202, end: 20180202
  5. LOXEN (NICARDIPINE HYDROCHLORIDE) [Suspect]
     Active Substance: NICARDIPINE HYDROCHLORIDE
     Indication: PRODUCT USED FOR UNKNOWN INDICATION
     Route: 041
     Dates: start: 20180202, end: 20180202
  6. EPHEDRINE. [Concomitant]
     Active Substance: EPHEDRINE
     Indication: PRODUCT USED FOR UNKNOWN INDICATION
     Route: 042
     Dates: start: 20180202, end: 20180202
  7. ACUPAN [Suspect]
     Active Substance: NEFOPAM HYDROCHLORIDE
     Indication: PAIN PROPHYLAXIS
     Route: 040
     Dates: start: 20180202, end: 20180202
  8. ROPIVACAINE (MANUFACTURER UNKNOWN) [Suspect]
     Active Substance: ROPIVACAINE
     Indication: LOCAL ANAESTHESIA
     Route: 065
     Dates: start: 20180202, end: 20180202
  9. PROPOFOL (MANUFACTURER UNKNOWN) [Suspect]
     Active Substance: PROPOFOL
     Indication: ANAESTHESIA
     Route: 042
     Dates: start: 20180202, end: 20180202
  10. LIDOCAINE AGUETTANT [Suspect]
     Active Substance: LIDOCAINE
     Indication: LOCAL ANAESTHESIA
     Route: 065
     Dates: start: 20180202, end: 20180202
  11. EXACYL [Suspect]
     Active Substance: TRANEXAMIC ACID
     Indication: HAEMORRHAGE PROPHYLAXIS
     Route: 042
     Dates: start: 20180202, end: 20180202

REACTIONS (1)
  - Clonus [Recovered/Resolved]

NARRATIVE: CASE EVENT DATE: 20180202
